FAERS Safety Report 7321339-6 (Version None)
Quarter: 2011Q1

REPORT INFORMATION
  Report Type: 
  Country: None (occurrence: None)
  Receive Date: 20110228
  Receipt Date: 20100219
  Transmission Date: 20110831
  Serious: No
  Sender: FDA-Public Use
  Company Number: US-PFIZER INC-2009297644

PATIENT
  Age: 46 Year
  Sex: Female
  Weight: 77.11 kg

DRUGS (2)
  1. GEODON [Suspect]
     Indication: MAJOR DEPRESSION
     Dosage: 40 MG, UNK
     Route: 048
  2. CYMBALTA [Concomitant]

REACTIONS (5)
  - HEADACHE [None]
  - ASTHENIA [None]
  - NAUSEA [None]
  - MYALGIA [None]
  - FATIGUE [None]
